FAERS Safety Report 14407811 (Version 1)
Quarter: 2018Q1

REPORT INFORMATION
  Report Type: Spontaneous
  Country: FR (occurrence: FR)
  Receive Date: 20180118
  Receipt Date: 20180118
  Transmission Date: 20180509
  Serious: Yes (Other)
  Sender: FDA-Public Use
  Company Number: FR-TEVA-2017-FR-837912

PATIENT
  Age: 71 Year
  Sex: Male

DRUGS (3)
  1. KARDEGIC [Concomitant]
     Active Substance: ASPIRIN DL-LYSINE
     Dosage: 1 DOSAGE FORMS DAILY;
     Route: 048
     Dates: start: 20080223
  2. CRESTOR [Concomitant]
     Active Substance: ROSUVASTATIN CALCIUM
     Dosage: 1 DOSAGE FORMS DAILY;
     Route: 048
     Dates: start: 20080223
  3. ACEBUTOLOL TEVA 200 MG [Suspect]
     Active Substance: ACEBUTOLOL
     Dosage: 1 DOSAGE FORMS DAILY;
     Route: 048
     Dates: start: 20171206, end: 20171212

REACTIONS (4)
  - Respiratory disorder [Unknown]
  - Respiratory failure [Recovered/Resolved]
  - Suffocation feeling [Recovered/Resolved]
  - Product substitution issue [Unknown]

NARRATIVE: CASE EVENT DATE: 20171206
